FAERS Safety Report 19191510 (Version 1)
Quarter: 2021Q2

REPORT INFORMATION
  Report Type: Spontaneous
  Country: GB (occurrence: GB)
  Receive Date: 20210428
  Receipt Date: 20210428
  Transmission Date: 20210717
  Serious: Yes (Hospitalization)
  Sender: FDA-Public Use
  Company Number: GB-ABBVIE-21P-167-3838472-00

PATIENT
  Sex: Male

DRUGS (1)
  1. PROSTAP 3 [Suspect]
     Active Substance: LEUPROLIDE ACETATE
     Indication: PROSTATE CANCER
     Dosage: 11.25 MILLIGRAM, Q3MONTHS
     Route: 030
     Dates: start: 20210205

REACTIONS (3)
  - No adverse event [Unknown]
  - Incorrect route of product administration [Unknown]
  - Needle issue [Unknown]

NARRATIVE: CASE EVENT DATE: 2021
